FAERS Safety Report 9624475 (Version 3)
Quarter: 2013Q4

REPORT INFORMATION
  Report Type: Spontaneous
  Country: US (occurrence: US)
  Receive Date: 20131015
  Receipt Date: 20131105
  Transmission Date: 20140711
  Serious: Yes (Other)
  Sender: FDA-Public Use
  Company Number: US-JNJFOC-20131003513

PATIENT
  Age: 35 Year
  Sex: Male
  Weight: 92.99 kg

DRUGS (8)
  1. RISPERDAL [Suspect]
     Indication: BIPOLAR DISORDER
     Route: 048
  2. RISPERDAL [Suspect]
     Indication: BIPOLAR DISORDER
     Route: 048
     Dates: start: 20081013, end: 20090429
  3. RISPERIDONE [Suspect]
     Indication: BIPOLAR DISORDER
     Route: 048
     Dates: start: 20090430, end: 20090525
  4. LORATADINE [Concomitant]
     Indication: MULTIPLE ALLERGIES
     Route: 065
  5. VITAMIN C [Concomitant]
     Indication: MULTIPLE ALLERGIES
     Route: 065
  6. HYDROCHLOROTHIAZIDE [Concomitant]
     Indication: HYPERTENSION
     Route: 065
     Dates: start: 20081104
  7. HYDROCHLOROTHIAZIDE [Concomitant]
     Indication: DIURETIC THERAPY
     Route: 065
     Dates: start: 20081104
  8. NIACIN [Concomitant]
     Indication: MULTIPLE ALLERGIES
     Route: 065

REACTIONS (14)
  - Erectile dysfunction [Not Recovered/Not Resolved]
  - Weight increased [Recovered/Resolved]
  - Social avoidant behaviour [Not Recovered/Not Resolved]
  - Bipolar disorder [Unknown]
  - Depression [Unknown]
  - Multiple allergies [Unknown]
  - Hyperphagia [Unknown]
  - Gynaecomastia [Not Recovered/Not Resolved]
  - Alcohol use [Not Recovered/Not Resolved]
  - Paranoia [Not Recovered/Not Resolved]
  - Nasopharyngitis [Unknown]
  - Treatment noncompliance [Unknown]
  - Weight decreased [Unknown]
  - Adverse drug reaction [Unknown]
